FAERS Safety Report 24293443 (Version 1)
Quarter: 2024Q3

REPORT INFORMATION
  Report Type: Spontaneous
  Country: US (occurrence: None)
  Receive Date: 20240906
  Receipt Date: 20240906
  Transmission Date: 20241016
  Serious: No
  Sender: DOMPE FARMACEUTICI
  Company Number: US-FARMAPROD-202401-0117

PATIENT
  Age: 52 Year
  Sex: Male

DRUGS (14)
  1. OXERVATE [Suspect]
     Active Substance: CENEGERMIN-BKBJ
     Indication: Neurotrophic keratopathy
     Route: 047
     Dates: start: 20240103, end: 20240221
  2. OXERVATE [Suspect]
     Active Substance: CENEGERMIN-BKBJ
     Route: 047
     Dates: start: 20240305
  3. OXERVATE [Suspect]
     Active Substance: CENEGERMIN-BKBJ
  4. SYSTANE COMPLETE PF [Concomitant]
     Active Substance: PROPYLENE GLYCOL
  5. GOODY^S BACK AND BODY PAIN [Concomitant]
  6. VITAMINS [Concomitant]
     Active Substance: VITAMINS
  7. KETOROLAC TROMETHAMINE [Concomitant]
     Active Substance: KETOROLAC TROMETHAMINE
  8. DULOXETINE HYDROCHLORIDE [Concomitant]
     Active Substance: DULOXETINE HYDROCHLORIDE
  9. OXYCODONE HYDROCHLORIDE [Concomitant]
     Active Substance: OXYCODONE HYDROCHLORIDE
  10. BACLOFEN [Concomitant]
     Active Substance: BACLOFEN
  11. GABAPENTIN [Concomitant]
     Active Substance: GABAPENTIN
  12. PRAVASTATIN SODIUM [Concomitant]
     Active Substance: PRAVASTATIN SODIUM
  13. MOXIFLOXACIN [Concomitant]
     Active Substance: MOXIFLOXACIN
  14. TRESIBA [Concomitant]
     Active Substance: INSULIN DEGLUDEC
     Dosage: VIAL

REACTIONS (8)
  - Eye pain [Unknown]
  - Lacrimation increased [Unknown]
  - Eye irritation [Unknown]
  - Rhinorrhoea [Unknown]
  - Therapy interrupted [Recovered/Resolved]
  - Intentional product misuse [Unknown]
  - Drug ineffective [Unknown]
  - Visual acuity reduced [Unknown]

NARRATIVE: CASE EVENT DATE: 20240221
